FAERS Safety Report 5084441-8 (Version None)
Quarter: 2006Q3

REPORT INFORMATION
  Report Type: 
  Country: None (occurrence: None)
  Receive Date: 20060821
  Receipt Date: 20060815
  Transmission Date: 20061208
  Serious: Yes (Death)
  Sender: FDA-Public Use
  Company Number: AU-GLAXOSMITHKLINE-B0434568A

PATIENT
  Age: 60 Year
  Sex: Male

DRUGS (2)
  1. SERETIDE [Suspect]
     Indication: ASTHMA
     Route: 055
  2. PROPRANOLOL [Concomitant]
     Indication: DRUG USE FOR UNKNOWN INDICATION
     Route: 065

REACTIONS (2)
  - ASTHMA [None]
  - DEATH [None]
